FAERS Safety Report 8990961 (Version 2)
Quarter: 2013Q2

REPORT INFORMATION
  Report Type: Spontaneous
  Country: PT (occurrence: PT)
  Receive Date: 20121231
  Receipt Date: 20130405
  Transmission Date: 20140414
  Serious: Yes (Hospitalization, Other)
  Sender: FDA-Public Use
  Company Number: PT-AMGEN-PRTSP2012083850

PATIENT
  Age: 52 Year
  Sex: Male
  Weight: 60 kg

DRUGS (8)
  1. ENBREL [Suspect]
     Indication: RHEUMATOID ARTHRITIS
     Dosage: 50 MG, WEEKLY
     Route: 058
     Dates: start: 20110409, end: 201210
  2. LEDERTREXATO [Interacting]
     Indication: RHEUMATOID ARTHRITIS
     Dosage: 15 MG, WEEKLY
     Route: 048
     Dates: start: 201001
  3. LEPICORTINOLO [Interacting]
     Indication: RHEUMATOID ARTHRITIS
     Dosage: 7.5 MG, 1X/DAY
     Route: 048
     Dates: start: 201001
  4. PLAQUINOL [Concomitant]
     Indication: RHEUMATOID ARTHRITIS
     Dosage: 400 MG, QD
     Route: 048
     Dates: start: 201001
  5. FOLICIL [Concomitant]
     Indication: RHEUMATOID ARTHRITIS
     Dosage: 5 MG, WEEKLY
     Route: 048
     Dates: start: 200911
  6. CALCITAB D [Concomitant]
     Indication: RHEUMATOID ARTHRITIS
     Dosage: 1 DF, DAY
     Route: 048
     Dates: start: 200911
  7. OMEPRAZOL                          /00661201/ [Concomitant]
     Indication: PROPHYLAXIS
     Dosage: 20 MG, DAY
     Route: 048
     Dates: start: 200911
  8. TRITICUM [Concomitant]
     Indication: INSOMNIA
     Dosage: 50 MG, DAY
     Route: 048
     Dates: start: 201101

REACTIONS (8)
  - Drug interaction [Recovered/Resolved]
  - Pleural effusion [Recovered/Resolved]
  - Productive cough [Recovered/Resolved]
  - Odynophagia [Recovered/Resolved]
  - Cough [Recovered/Resolved]
  - Lung abscess [Recovered/Resolved]
  - Pneumonia pseudomonas aeruginosa [Recovered/Resolved]
  - Respiratory tract infection [Recovered/Resolved]
